FAERS Safety Report 8600993-2 (Version None)
Quarter: 2012Q3

REPORT INFORMATION
  Report Type: 
  Country: None (occurrence: None)
  Receive Date: 20120817
  Receipt Date: 20120808
  Transmission Date: 20120928
  Serious: Yes (Hospitalization)
  Sender: FDA-Public Use
  Company Number: US-BAYER-2012-055903

PATIENT
  Age: 40 Year
  Sex: Female
  Weight: 77.098 kg

DRUGS (4)
  1. YASMIN [Suspect]
     Indication: DYSMENORRHOEA
     Dosage: UNK
     Dates: start: 20030501, end: 20061201
  2. PRINIVIL [Concomitant]
     Dosage: 10 MG, DAILY
  3. LISINOPRIL [Concomitant]
     Dosage: 5 MG, DAILY
  4. DILAUDID [Concomitant]
     Indication: PAIN
     Dosage: UNK UNK, PRN

REACTIONS (7)
  - DEPRESSION [None]
  - ANHEDONIA [None]
  - ANXIETY [None]
  - INJURY [None]
  - FEAR [None]
  - DEEP VEIN THROMBOSIS [None]
  - PAIN [None]
